FAERS Safety Report 18480223 (Version 3)
Quarter: 2020Q4

REPORT INFORMATION
  Report Type: Report from Study
  Country: CA (occurrence: CA)
  Receive Date: 20201109
  Receipt Date: 20201123
  Transmission Date: 20210114
  Serious: Yes (Hospitalization, Other)
  Sender: FDA-Public Use
  Company Number: CA-BIOGEN-2020BI00942289

PATIENT
  Sex: Female

DRUGS (1)
  1. TYSABRI [Suspect]
     Active Substance: NATALIZUMAB
     Indication: MULTIPLE SCLEROSIS
     Route: 042
     Dates: start: 20190121

REACTIONS (15)
  - Loss of consciousness [Not Recovered/Not Resolved]
  - Urinary incontinence [Not Recovered/Not Resolved]
  - Headache [Unknown]
  - Nephrolithiasis [Recovered/Resolved]
  - Pain in extremity [Unknown]
  - Immunosuppression [Not Recovered/Not Resolved]
  - Muscle spasms [Unknown]
  - Seizure [Not Recovered/Not Resolved]
  - Accident [Recovered/Resolved]
  - Dizziness [Not Recovered/Not Resolved]
  - Headache [Not Recovered/Not Resolved]
  - Head injury [Not Recovered/Not Resolved]
  - Renal pain [Recovered/Resolved]
  - Insomnia [Not Recovered/Not Resolved]
  - Blood pressure decreased [Unknown]
